FAERS Safety Report 10345748 (Version 1)
Quarter: 2014Q3

REPORT INFORMATION
  Report Type: Spontaneous
  Country: ES (occurrence: None)
  Receive Date: 20140723
  Receipt Date: 20140723
  Transmission Date: 20150326
  Serious: Yes (Other)
  Sender: FDA-Public Use
  Company Number: 7306827

PATIENT
  Sex: Female

DRUGS (1)
  1. EUTHYROX [Suspect]
     Active Substance: LEVOTHYROXINE SODIUM
     Indication: HYPOTHYROIDISM
     Route: 048

REACTIONS (11)
  - Back pain [None]
  - Depressed mood [None]
  - Anxiety [None]
  - Insomnia [None]
  - Nasal septum disorder [None]
  - Alopecia [None]
  - Throat cancer [None]
  - Sensation of foreign body [None]
  - Constipation [None]
  - Oropharyngeal pain [None]
  - Chest pain [None]
